FAERS Safety Report 7336285-1 (Version None)
Quarter: 2011Q1

REPORT INFORMATION
  Report Type: 
  Country: None (occurrence: None)
  Receive Date: 20110307
  Receipt Date: 20110222
  Transmission Date: 20110831
  Serious: Yes (Other)
  Sender: FDA-Public Use
  Company Number: PHHY2011US01684

PATIENT
  Sex: Female
  Weight: 102 kg

DRUGS (12)
  1. EXJADE [Suspect]
     Dosage: 125 MG, UNK
     Dates: start: 20101229
  2. SPIRONOLACTONE [Concomitant]
  3. TRAMADOL HCL [Concomitant]
  4. EXJADE [Suspect]
     Indication: THALASSAEMIA
     Dosage: 125 MG, DAILY
     Route: 048
     Dates: start: 20101229, end: 20101230
  5. TRAZODONE HCL [Concomitant]
  6. JANUVIA [Concomitant]
  7. SYNTHROID [Concomitant]
  8. LASIX [Concomitant]
  9. ACTOS [Concomitant]
  10. PLAVIX [Concomitant]
  11. ZOCOR [Concomitant]
  12. PROTONIX [Concomitant]

REACTIONS (7)
  - BLINDNESS [None]
  - GASTROINTESTINAL SOUNDS ABNORMAL [None]
  - NAUSEA [None]
  - FATIGUE [None]
  - CHILLS [None]
  - DIARRHOEA [None]
  - PYREXIA [None]
